FAERS Safety Report 24714009 (Version 1)
Quarter: 2024Q4

REPORT INFORMATION
  Report Type: Spontaneous
  Country: US (occurrence: US)
  Receive Date: 20241209
  Receipt Date: 20241209
  Transmission Date: 20250115
  Serious: No
  Sender: REGENERON
  Company Number: US-REGENERON PHARMACEUTICALS, INC.-2024-096691

PATIENT

DRUGS (2)
  1. EYLEA [Suspect]
     Active Substance: AFLIBERCEPT
     Indication: Product used for unknown indication
     Dosage: UNK (STRENGTH: 2MG/0.05ML STERILE, FORMULATION: SINGLE-DOSE PRE-FILLED GLASS SYRINGE (GERRESHEIMER))
  2. EYLEA [Suspect]
     Active Substance: AFLIBERCEPT
     Dosage: UNK (STRENGTH: 2MG/0.05ML STERILE, FORMULATION: SINGLE-DOSE PRE-FILLED GLASS SYRINGE (GERRESHEIMER))

REACTIONS (1)
  - Wrong technique in product usage process [Unknown]
